FAERS Safety Report 17549444 (Version 1)
Quarter: 2020Q1

REPORT INFORMATION
  Report Type: Spontaneous
  Country: US (occurrence: US)
  Receive Date: 20200317
  Receipt Date: 20200317
  Transmission Date: 20200409
  Serious: Yes (Hospitalization, Other)
  Sender: FDA-Public Use
  Company Number: US-GLAXOSMITHKLINE-US2020GSK043906

PATIENT
  Sex: Female

DRUGS (3)
  1. OMEPRAZOLE. [Suspect]
     Active Substance: OMEPRAZOLE
     Indication: GASTROOESOPHAGEAL REFLUX DISEASE
     Dosage: 20 MG, QD
     Route: 065
     Dates: start: 20140203, end: 20151119
  2. PREVACID [Suspect]
     Active Substance: LANSOPRAZOLE
     Indication: GASTROOESOPHAGEAL REFLUX DISEASE
     Dosage: UNK
     Route: 065
     Dates: end: 201503
  3. PREVACID [Suspect]
     Active Substance: LANSOPRAZOLE
     Indication: PRODUCT USED FOR UNKNOWN INDICATION
     Dosage: UNK
     Route: 065

REACTIONS (17)
  - Renal injury [Unknown]
  - Renal impairment [Unknown]
  - Azotaemia [Unknown]
  - Hyperoxaluria [Unknown]
  - Chronic kidney disease [Not Recovered/Not Resolved]
  - Nephrogenic anaemia [Unknown]
  - Proteinuria [Unknown]
  - Renal failure [Unknown]
  - Dialysis [Not Recovered/Not Resolved]
  - Haemodialysis [Unknown]
  - Diabetic nephropathy [Unknown]
  - End stage renal disease [Not Recovered/Not Resolved]
  - Nephropathy [Unknown]
  - Acute kidney injury [Unknown]
  - Anuria [Unknown]
  - Nephrocalcinosis [Unknown]
  - Renal tubular necrosis [Unknown]
